FAERS Safety Report 5339499-5 (Version None)
Quarter: 2007Q2

REPORT INFORMATION
  Report Type: 
  Country: None (occurrence: None)
  Receive Date: 20070525
  Receipt Date: 20070511
  Transmission Date: 20071010
  Serious: Yes (Hospitalization)
  Sender: FDA-Public Use
  Company Number: 6033430

PATIENT
  Age: 17 Year
  Sex: Male

DRUGS (2)
  1. AZATHIOPRINE [Suspect]
     Indication: CROHN'S DISEASE
     Dosage: 250,0000 MG (250 MG, 1 IN 1 D) ORAL
     Route: 048
     Dates: start: 20061108, end: 20070221
  2. PENTASA [Concomitant]

REACTIONS (3)
  - PALPITATIONS [None]
  - PANCYTOPENIA [None]
  - PYREXIA [None]
